FAERS Safety Report 9221231 (Version 1)
Quarter: 2013Q2

REPORT INFORMATION
  Report Type: Spontaneous
  Country: US (occurrence: US)
  Receive Date: 20130410
  Receipt Date: 20130410
  Transmission Date: 20140414
  Serious: Yes (Hospitalization)
  Sender: FDA-Public Use
  Company Number: US-BIOGENIDEC-2013BI030844

PATIENT
  Age: 48 Year
  Sex: Female

DRUGS (1)
  1. TYSABRI [Suspect]
     Indication: MULTIPLE SCLEROSIS
     Route: 042
     Dates: start: 20110728

REACTIONS (14)
  - White blood cell count increased [Recovered/Resolved]
  - Gastroenteritis norovirus [Recovered/Resolved]
  - Vomiting [Recovered/Resolved]
  - Diarrhoea [Recovered/Resolved]
  - Dehydration [Recovered/Resolved]
  - Upper respiratory tract infection [Recovered/Resolved]
  - Oropharyngeal candidiasis [Recovered/Resolved]
  - Urinary tract infection [Recovered/Resolved]
  - Bacterial test [Recovered/Resolved]
  - Eye discharge [Recovered/Resolved]
  - Fungal infection [Recovered/Resolved]
  - Bronchitis [Recovered/Resolved]
  - Lung infection [Recovered/Resolved]
  - Pulmonary fibrosis [Recovered/Resolved]
